FAERS Safety Report 17680150 (Version 3)
Quarter: 2020Q2

REPORT INFORMATION
  Report Type: Spontaneous
  Country: US (occurrence: US)
  Receive Date: 20200417
  Receipt Date: 20200522
  Transmission Date: 20200714
  Serious: Yes (Other)
  Sender: FDA-Public Use
  Company Number: US-BAYER-2020-059265

PATIENT
  Age: 58 Year
  Sex: Female

DRUGS (3)
  1. ONE-A-DAY WOMEN^S PRENATAL SINGLE [Suspect]
     Active Substance: FISH OIL\MINERALS\VITAMINS
     Dosage: 1 DF, QD
     Route: 048
  2. CITRACAL [Suspect]
     Active Substance: CALCIUM CITRATE
  3. ALEVE [Suspect]
     Active Substance: NAPROXEN SODIUM

REACTIONS (9)
  - Choking [Unknown]
  - Malaise [Unknown]
  - Abdominal pain upper [Unknown]
  - Suspected product contamination [None]
  - Headache [Unknown]
  - Product contamination physical [None]
  - Gingival injury [Unknown]
  - Gingival swelling [Unknown]
  - Oropharyngeal pain [None]
